FAERS Safety Report 16256292 (Version 1)
Quarter: 2019Q2

REPORT INFORMATION
  Report Type: Spontaneous
  Country: US (occurrence: US)
  Receive Date: 20190430
  Receipt Date: 20190430
  Transmission Date: 20190711
  Serious: No
  Sender: FDA-Public Use
  Company Number: US-PERRIGO-18US007302

PATIENT
  Age: 43 Year
  Sex: Female
  Weight: 65.76 kg

DRUGS (13)
  1. FLUDROCORTISONE [Concomitant]
     Active Substance: FLUDROCORTISONE
     Indication: ADDISON^S DISEASE
     Dosage: UNK, UNK
     Route: 065
     Dates: start: 2006
  2. IMITREX [Concomitant]
     Active Substance: SUMATRIPTAN SUCCINATE
     Indication: MIGRAINE
     Dosage: 100 MG, PRN
     Route: 065
     Dates: start: 2006
  3. HYDROMORPHONE HYDROCHLORIDE. [Suspect]
     Active Substance: HYDROMORPHONE HYDROCHLORIDE
     Indication: PAIN
     Dosage: 16 MG, TID
     Route: 048
     Dates: start: 2013, end: 2017
  4. LEVOTHYROXINE. [Concomitant]
     Active Substance: LEVOTHYROXINE
     Indication: THYROID DISORDER
     Dosage: 50 MCG, UNK
     Route: 048
     Dates: start: 2006
  5. MOVANTIK [Concomitant]
     Active Substance: NALOXEGOL OXALATE
     Indication: CONSTIPATION
     Dosage: 25 MG, UNK
     Route: 048
     Dates: start: 2006
  6. HYDROMORPHONE HYDROCHLORIDE. [Suspect]
     Active Substance: HYDROMORPHONE HYDROCHLORIDE
     Dosage: 16 MG, QD
     Route: 048
     Dates: start: 2017
  7. ASPRIN [Concomitant]
     Active Substance: ASPIRIN
     Indication: FACTOR V LEIDEN CARRIER
     Dosage: 325 MG, UNK
     Route: 048
     Dates: start: 2006
  8. KLONOPIN [Concomitant]
     Active Substance: CLONAZEPAM
     Indication: INSOMNIA
     Dosage: UNK, UNK
     Route: 048
     Dates: start: 2006
  9. HYDROCORTISONE. [Concomitant]
     Active Substance: HYDROCORTISONE
     Indication: ADDISON^S DISEASE
     Dosage: 25 MG, UNK
     Route: 048
     Dates: start: 2006
  10. HYDROMORPHONE HYDROCHLORIDE. [Suspect]
     Active Substance: HYDROMORPHONE HYDROCHLORIDE
     Dosage: 16 MG, BID
     Route: 048
     Dates: start: 2017, end: 2017
  11. RELAFEN [Concomitant]
     Active Substance: NABUMETONE
     Indication: INFLAMMATION
     Dosage: 500 MG, BID
     Route: 048
     Dates: start: 2006
  12. WELLBUTRIN [Concomitant]
     Active Substance: BUPROPION HYDROCHLORIDE
     Indication: PAIN
     Dosage: 300 MG, UNK
     Route: 048
     Dates: start: 2017
  13. KLONOPIN [Concomitant]
     Active Substance: CLONAZEPAM
     Indication: ANXIETY

REACTIONS (5)
  - Product administration error [Recovered/Resolved]
  - Adrenocortical insufficiency acute [Recovered/Resolved]
  - Diarrhoea [Recovered/Resolved]
  - Withdrawal syndrome [Recovered/Resolved]
  - Product residue present [Recovered/Resolved]

NARRATIVE: CASE EVENT DATE: 201504
